FAERS Safety Report 6869987-1 (Version None)
Quarter: 2010Q3

REPORT INFORMATION
  Report Type: 
  Country: None (occurrence: None)
  Receive Date: 20100722
  Receipt Date: 20100713
  Transmission Date: 20110219
  Serious: Yes (Other)
  Sender: FDA-Public Use
  Company Number: VE-PFIZER INC-2010081865

PATIENT
  Age: 36 Year
  Sex: Female

DRUGS (2)
  1. TAFIL [Suspect]
     Indication: INSOMNIA
     Dosage: 1 MG, 1X/DAY
     Route: 048
     Dates: start: 20070101, end: 20100616
  2. ATENOLOL [Concomitant]
     Indication: HYPERTENSION
     Dosage: 50 MG, 1X/DAY
     Route: 048
     Dates: start: 20080101

REACTIONS (4)
  - ANXIETY [None]
  - DEPRESSION [None]
  - HYPERTENSIVE CRISIS [None]
  - INSOMNIA [None]
